FAERS Safety Report 6705121-6 (Version None)
Quarter: 2010Q2

REPORT INFORMATION
  Report Type: 
  Country: None (occurrence: None)
  Receive Date: 20100430
  Receipt Date: 20100217
  Transmission Date: 20101027
  Serious: No
  Sender: FDA-Public Use
  Company Number: US-ASTRAZENECA-2010SE06910

PATIENT
  Sex: Female
  Weight: 74.8 kg

DRUGS (1)
  1. NEXIUM [Suspect]
     Route: 048

REACTIONS (2)
  - GASTRIC DILATATION [None]
  - SKIN DISCOLOURATION [None]
